FAERS Safety Report 9112891 (Version 3)
Quarter: 2013Q1

REPORT INFORMATION
  Report Type: Report from Study
  Country: US (occurrence: US)
  Receive Date: 20130211
  Receipt Date: 20130328
  Transmission Date: 20140127
  Serious: Yes (Hospitalization, Other)
  Sender: FDA-Public Use
  Company Number: US-BAXTER-2013BAX004346

PATIENT
  Age: 45 None
  Sex: Male
  Weight: 85.45 kg

DRUGS (6)
  1. GAMMAGARD LIQUID [Suspect]
     Indication: IMMUNODEFICIENCY COMMON VARIABLE
     Route: 042
     Dates: start: 20130129, end: 20130129
  2. GAMMAGARD LIQUID [Suspect]
     Route: 042
     Dates: start: 20120327, end: 20120327
  3. GAMMAGARD LIQUID [Suspect]
     Route: 042
     Dates: start: 201204, end: 201206
  4. FOCALIN [Concomitant]
     Indication: ATTENTION DEFICIT/HYPERACTIVITY DISORDER
     Route: 065
  5. CITALOPRAM [Concomitant]
     Indication: ANXIETY
     Route: 065
  6. PREDNISONE [Concomitant]
     Indication: PRODUCT USED FOR UNKNOWN INDICATION
     Route: 065

REACTIONS (7)
  - Small intestine carcinoma [Recovered/Resolved]
  - Infection [Recovered/Resolved]
  - Arterial haemorrhage [Recovered/Resolved]
  - Multimorbidity [Recovered/Resolved]
  - Incisional hernia [Not Recovered/Not Resolved]
  - Eye pruritus [Recovered/Resolved]
  - Infusion site pruritus [Recovered/Resolved]
